FAERS Safety Report 17147609 (Version 1)
Quarter: 2019Q4

REPORT INFORMATION
  Report Type: Report from Study
  Country: IT (occurrence: IT)
  Receive Date: 20191212
  Receipt Date: 20191212
  Transmission Date: 20200122
  Serious: Yes (Hospitalization)
  Sender: FDA-Public Use
  Company Number: IT-MYLANLABS-2019M1122180

PATIENT
  Age: 32 Year
  Sex: Female

DRUGS (2)
  1. PARACETAMOL CODEINE [Suspect]
     Active Substance: ACETAMINOPHEN\CODEINE PHOSPHATE
     Indication: TOOTHACHE
     Dosage: 2 DOSAGE FORM, TOTAL
     Route: 048
     Dates: start: 20190718, end: 20190719
  2. KETOPROFEN. [Suspect]
     Active Substance: KETOPROFEN
     Indication: TOOTHACHE
     Dosage: 14 DOSAGE FORM, TOTAL
     Route: 048
     Dates: start: 20190718, end: 20190719

REACTIONS (1)
  - Hot flush [Recovering/Resolving]

NARRATIVE: CASE EVENT DATE: 20190719
